FAERS Safety Report 11830978 (Version 1)
Quarter: 2015Q4

REPORT INFORMATION
  Report Type: Report from Study
  Country: US (occurrence: US)
  Receive Date: 20151214
  Receipt Date: 20151214
  Transmission Date: 20160305
  Serious: Yes (Hospitalization)
  Sender: FDA-Public Use
  Company Number: US-AMGEN-USASL2015130681

PATIENT
  Age: 65 Year
  Sex: Female

DRUGS (2)
  1. NUVIGIL [Suspect]
     Active Substance: ARMODAFINIL
     Indication: FATIGUE
     Route: 065
  2. ENBREL [Suspect]
     Active Substance: ETANERCEPT
     Indication: PSORIATIC ARTHROPATHY
     Dosage: 50 MG, QWK
     Route: 065
     Dates: start: 20131109

REACTIONS (14)
  - Memory impairment [Unknown]
  - Sleep apnoea syndrome [Unknown]
  - Weight decreased [Unknown]
  - Limb discomfort [Unknown]
  - Decreased appetite [Unknown]
  - Fatigue [Unknown]
  - Inappropriate schedule of drug administration [Unknown]
  - Vomiting [Unknown]
  - Restlessness [Unknown]
  - Pain [Unknown]
  - Hypoaesthesia [Unknown]
  - Arthritis [Unknown]
  - Joint lock [Unknown]
  - Blood iron decreased [Unknown]

NARRATIVE: CASE EVENT DATE: 2015
